FAERS Safety Report 8594760-6 (Version None)
Quarter: 2012Q3

REPORT INFORMATION
  Report Type: 
  Country: None (occurrence: None)
  Receive Date: 20120815
  Receipt Date: 20120801
  Transmission Date: 20120928
  Serious: Yes (Hospitalization)
  Sender: FDA-Public Use
  Company Number: JP-SANOFI-AVENTIS-2012SA056100

PATIENT
  Age: 70 Year
  Sex: Male

DRUGS (1)
  1. FUROSEMIDE [Suspect]
     Route: 065
     Dates: start: 20110601

REACTIONS (10)
  - LOSS OF CONSCIOUSNESS [None]
  - NAUSEA [None]
  - ADAMS-STOKES SYNDROME [None]
  - ATRIAL FIBRILLATION [None]
  - ARRHYTHMIA [None]
  - CARDIAC ARREST [None]
  - MALAISE [None]
  - HYPOKALAEMIA [None]
  - TETANY [None]
  - BRADYCARDIA [None]
